FAERS Safety Report 11843174 (Version 1)
Quarter: 2015Q4

REPORT INFORMATION
  Report Type: Report from Study
  Country: US (occurrence: US)
  Receive Date: 20151216
  Receipt Date: 20151216
  Transmission Date: 20160305
  Serious: Yes (Other)
  Sender: FDA-Public Use
  Company Number: US-AMGEN-USASL2015133834

PATIENT
  Age: 62 Year
  Sex: Female

DRUGS (2)
  1. ENBREL [Suspect]
     Active Substance: ETANERCEPT
     Indication: PSORIASIS
  2. ENBREL [Suspect]
     Active Substance: ETANERCEPT
     Indication: PSORIATIC ARTHROPATHY
     Dosage: 50 MG, 2 TIMES/WK
     Route: 065
     Dates: start: 201401

REACTIONS (12)
  - Foot operation [Unknown]
  - Pain [Unknown]
  - Scoliosis [Unknown]
  - Sinus disorder [Unknown]
  - Calcinosis [Unknown]
  - Large intestinal ulcer [Unknown]
  - Cough [Unknown]
  - Dysphonia [Unknown]
  - Malaise [Unknown]
  - Back pain [Unknown]
  - Oropharyngeal pain [Unknown]
  - Insomnia [Unknown]

NARRATIVE: CASE EVENT DATE: 2015
